FAERS Safety Report 11038501 (Version 1)
Quarter: 2015Q2

REPORT INFORMATION
  Report Type: Report from Study
  Country: US (occurrence: US)
  Receive Date: 20150416
  Receipt Date: 20150416
  Transmission Date: 20150821
  Serious: Yes (Other)
  Sender: FDA-Public Use
  Company Number: US-GILEAD-2015-0148303

PATIENT
  Age: 82 Year
  Sex: Female

DRUGS (1)
  1. RANOLAZINE [Suspect]
     Active Substance: RANOLAZINE
     Indication: ANGINA PECTORIS
     Dosage: 500 MG, UNK
     Route: 048

REACTIONS (7)
  - Blindness [Unknown]
  - Angina pectoris [Not Recovered/Not Resolved]
  - Corneal disorder [Unknown]
  - Stress [Unknown]
  - Dysphonia [Unknown]
  - Visual impairment [Unknown]
  - Dyskinesia [Unknown]
